FAERS Safety Report 7261715-3 (Version None)
Quarter: 2011Q1

REPORT INFORMATION
  Report Type: 
  Country: None (occurrence: None)
  Receive Date: 20110130
  Receipt Date: 20101025
  Transmission Date: 20110831
  Serious: No
  Sender: FDA-Public Use
  Company Number: US-ABBOTT-10P-163-0680994-00

PATIENT
  Age: 42 Year
  Sex: Male

DRUGS (2)
  1. ZYRTEC [Concomitant]
     Indication: PRODUCT USED FOR UNKNOWN INDICATION
  2. HUMIRA [Suspect]
     Indication: PSORIASIS
     Dates: start: 20091001

REACTIONS (8)
  - RASH [None]
  - HYPERSENSITIVITY [None]
  - ERYTHEMA [None]
  - PARAESTHESIA [None]
  - PRURITUS [None]
  - PYREXIA [None]
  - CHILLS [None]
  - FEELING HOT [None]
